FAERS Safety Report 25044585 (Version 3)
Quarter: 2025Q4

REPORT INFORMATION
  Report Type: Report from Study
  Country: US (occurrence: US)
  Receive Date: 20250306
  Receipt Date: 20251023
  Transmission Date: 20260118
  Serious: Yes (Other)
  Sender: ALEXION PHARMACEUTICALS
  Company Number: US-AstraZeneca-CH-00817446A

PATIENT
  Age: 70 Year
  Sex: Female
  Weight: 64.7 kg

DRUGS (12)
  1. OLAPARIB [Suspect]
     Active Substance: OLAPARIB
     Dosage: UNK
     Route: 065
  2. ACETAMINOPHEN [Concomitant]
     Active Substance: ACETAMINOPHEN
     Route: 065
  3. CAPSAICIN [Concomitant]
     Active Substance: CAPSAICIN
     Route: 065
  4. DIAZEPAM [Concomitant]
     Active Substance: DIAZEPAM
     Route: 065
  5. LEVOTHYROXINE [Concomitant]
     Active Substance: LEVOTHYROXINE
     Route: 065
  6. LIDOCAINE [Concomitant]
     Active Substance: LIDOCAINE
     Route: 065
  7. LIOTHYRONINE [Concomitant]
     Active Substance: LIOTHYRONINE
     Route: 065
  8. LORAZEPAM [Concomitant]
     Active Substance: LORAZEPAM
     Route: 065
  9. MORPHINE [Concomitant]
     Active Substance: MORPHINE
     Route: 065
  10. ONDANSETRON [Concomitant]
     Active Substance: ONDANSETRON
     Route: 065
  11. OXYCODONE [Concomitant]
     Active Substance: OXYCODONE
     Route: 065
  12. POLYETHYLENE GLYCOL [Concomitant]
     Active Substance: POLYETHYLENE GLYCOL
     Route: 065

REACTIONS (36)
  - Neoplasm malignant [Unknown]
  - Iodine uptake increased [Unknown]
  - Thyroid cancer [Unknown]
  - White blood cell disorder [Unknown]
  - Dural abscess [Unknown]
  - Hip arthroplasty [Recovering/Resolving]
  - Pain [Not Recovered/Not Resolved]
  - Decreased appetite [Not Recovered/Not Resolved]
  - Asthenia [Not Recovered/Not Resolved]
  - Hypoaesthesia [Unknown]
  - Walking aid user [Unknown]
  - Fatigue [Unknown]
  - Walking aid user [Unknown]
  - Cerebral arteritis [Unknown]
  - Hepatic lesion [Unknown]
  - Nodule [Unknown]
  - Osteolysis [Unknown]
  - Bronchiectasis [Unknown]
  - Lymphadenopathy [Unknown]
  - Craniotomy [Unknown]
  - Acne cystic [Unknown]
  - Liver disorder [Unknown]
  - Bronchoplasty [Unknown]
  - Osteolysis [Unknown]
  - Arterial injury [Unknown]
  - Necrosis [Unknown]
  - Osteoarthritis [Unknown]
  - Abdominal pain [Unknown]
  - Iron deficiency anaemia [Unknown]
  - Oedema [Unknown]
  - Dental caries [Unknown]
  - Benign glioma [Unknown]
  - Tear break up time decreased [Unknown]
  - Vitamin D deficiency [Unknown]
  - Nausea [Unknown]
  - Rhinitis allergic [Unknown]
